FAERS Safety Report 18748140 (Version 3)
Quarter: 2021Q1

REPORT INFORMATION
  Report Type: Spontaneous
  Country: CA (occurrence: CA)
  Receive Date: 20210116
  Receipt Date: 20210130
  Transmission Date: 20210419
  Serious: Yes (Other)
  Sender: FDA-Public Use
  Company Number: CA-AUROBINDO-AUR-APL-2021-001080

PATIENT
  Age: 52 Year
  Sex: Female
  Weight: 63.5 kg

DRUGS (5)
  1. AURO?LAMOTRIGINE 25 [Suspect]
     Active Substance: LAMOTRIGINE
     Indication: EPILEPSY
     Dosage: 0.5 DOSAGE FORM, TWO TIMES A DAY
     Route: 048
     Dates: start: 20201123
  2. DILANTIN [Interacting]
     Active Substance: PHENYTOIN
     Indication: EPILEPSY
     Dosage: 1 DOSAGE FORM, ONCE A DAY, SHE WAS ON MANY YEARS
     Route: 065
  3. VIMPAT [Concomitant]
     Active Substance: LACOSAMIDE
     Indication: PRODUCT USED FOR UNKNOWN INDICATION
     Dosage: SHE WAS ON MANY YEARS
     Route: 065
  4. CLOBAZAM. [Concomitant]
     Active Substance: CLOBAZAM
     Indication: PRODUCT USED FOR UNKNOWN INDICATION
     Dosage: SHE WAS ON MANY YEARS
     Route: 065
  5. DILANTIN [Interacting]
     Active Substance: PHENYTOIN
     Indication: EPILEPSY
     Dosage: ON MANY YEARS
     Route: 065

REACTIONS (9)
  - Drug interaction [Recovered/Resolved]
  - Hypoaesthesia [Recovered/Resolved]
  - Tremor [Recovered/Resolved]
  - Speech disorder [Recovered/Resolved]
  - Dizziness [Recovered/Resolved]
  - Memory impairment [Recovered/Resolved]
  - Menstrual disorder [Recovered/Resolved]
  - Seizure [Recovered/Resolved]
  - Feeling cold [Recovered/Resolved]

NARRATIVE: CASE EVENT DATE: 20201123
